FAERS Safety Report 18748648 (Version 5)
Quarter: 2022Q1

REPORT INFORMATION
  Report Type: Report from Study
  Country: US (occurrence: US)
  Receive Date: 20210115
  Receipt Date: 20220114
  Transmission Date: 20220423
  Serious: Yes (Life-Threatening, Hospitalization, Other)
  Sender: FDA-Public Use
  Company Number: US-REGENERON PHARMACEUTICALS, INC.-2021-13091

PATIENT
  Age: 85 Year
  Sex: Male

DRUGS (3)
  1. CASIRIVIMAB\IMDEVIMAB [Suspect]
     Active Substance: CASIRIVIMAB\IMDEVIMAB
     Indication: COVID-19
     Dosage: CASIRIVIMAB AND IMDEVIMAB COMBINATION THERAPY 1.2 G, IV, SINGLE DOSE
     Route: 042
     Dates: start: 20210108, end: 20210108
  2. LENALIDOMIDE [Concomitant]
     Active Substance: LENALIDOMIDE
     Indication: Lymphocyte adoptive therapy
     Dosage: UNK
     Dates: start: 202003
  3. ELIQUIS [Concomitant]
     Active Substance: APIXABAN
     Indication: Atrial thrombosis

REACTIONS (11)
  - Haemoptysis [Recovering/Resolving]
  - Hypoxia [Recovering/Resolving]
  - Hypotension [Recovered/Resolved]
  - Distributive shock [Recovered/Resolved]
  - Anaphylactic reaction [Recovered/Resolved]
  - COVID-19 [Recovering/Resolving]
  - Pulmonary oedema [Unknown]
  - Cardiogenic shock [Unknown]
  - Pneumonia bacterial [Unknown]
  - Pyrexia [Recovered/Resolved]
  - Chills [Recovered/Resolved]

NARRATIVE: CASE EVENT DATE: 20210108
